FAERS Safety Report 8428299-5 (Version None)
Quarter: 2012Q2

REPORT INFORMATION
  Report Type: 
  Country: None (occurrence: None)
  Receive Date: 20120611
  Receipt Date: 20120524
  Transmission Date: 20120825
  Serious: Yes (Hospitalization, Disabling, Other)
  Sender: FDA-Public Use
  Company Number: US-MERCK-1201USA01459

PATIENT
  Age: 66 Year
  Sex: Female

DRUGS (4)
  1. ALENDRONATE SODIUM [Suspect]
     Indication: OSTEOPOROSIS
     Route: 048
     Dates: start: 20080425
  2. NORVASC [Concomitant]
     Route: 065
  3. FOSAMAX [Suspect]
     Route: 048
     Dates: start: 20001008
  4. FOSAMAX [Suspect]
     Indication: OSTEOPOROSIS
     Route: 048
     Dates: start: 19960719

REACTIONS (22)
  - OSTEOMA [None]
  - SOMNOLENCE [None]
  - CARDIOMEGALY [None]
  - CARDIAC MURMUR [None]
  - OSTEOPENIA [None]
  - SYNOVIAL CYST [None]
  - VITAMIN D DEFICIENCY [None]
  - URINARY INCONTINENCE [None]
  - PAIN IN EXTREMITY [None]
  - BLOOD CHOLESTEROL INCREASED [None]
  - FEMUR FRACTURE [None]
  - CHRONIC OBSTRUCTIVE PULMONARY DISEASE [None]
  - TIBIA FRACTURE [None]
  - INTERVERTEBRAL DISC SPACE NARROWING [None]
  - LOW TURNOVER OSTEOPATHY [None]
  - FOREARM FRACTURE [None]
  - MENISCUS LESION [None]
  - PYREXIA [None]
  - GASTROOESOPHAGEAL REFLUX DISEASE [None]
  - FALL [None]
  - ATELECTASIS [None]
  - OEDEMA PERIPHERAL [None]
